FAERS Safety Report 16030060 (Version 1)
Quarter: 2019Q2

REPORT INFORMATION
  Report Type: Spontaneous
  Country: US (occurrence: US)
  Receive Date: 20190304
  Receipt Date: 20190304
  Transmission Date: 20190711
  Serious: Yes (Other)
  Sender: FDA-Public Use
  Company Number: None

PATIENT
  Age: 6 Year
  Sex: Male
  Weight: 22.5 kg

DRUGS (2)
  1. MIRALAX [Suspect]
     Active Substance: POLYETHYLENE GLYCOL 3350
     Indication: ENCOPRESIS
     Route: 048
     Dates: start: 20181015, end: 20190225
  2. VITAMINS [Concomitant]
     Active Substance: VITAMINS

REACTIONS (20)
  - Fatigue [None]
  - Aggression [None]
  - Intentional self-injury [None]
  - Cognitive disorder [None]
  - Stomatitis [None]
  - Speech disorder [None]
  - Psychiatric symptom [None]
  - Headache [None]
  - Defiant behaviour [None]
  - Pyrexia [None]
  - Pain in extremity [None]
  - Breath odour [None]
  - Agitation [None]
  - Mood swings [None]
  - Lethargy [None]
  - Stress [None]
  - Obsessive-compulsive disorder [None]
  - Anger [None]
  - Feeling cold [None]
  - Confusional state [None]
